FAERS Safety Report 6451251-6 (Version None)
Quarter: 2009Q4

REPORT INFORMATION
  Report Type: 
  Country: None (occurrence: None)
  Receive Date: 20091123
  Receipt Date: 20091111
  Transmission Date: 20100525
  Serious: Yes (Hospitalization, Other)
  Sender: FDA-Public Use
  Company Number: IE-ELI_LILLY_AND_COMPANY-IE200911002833

PATIENT
  Sex: Female

DRUGS (7)
  1. BYETTA [Suspect]
     Indication: DIABETES MELLITUS
     Dosage: 5 UG, 2/D
     Dates: start: 20090205
  2. BYETTA [Suspect]
     Dosage: 10 UG, 2/D
     Dates: start: 20090101
  3. GLUCOPHAGE [Concomitant]
     Dosage: 1 G, 2/D
     Route: 048
  4. DIAMICRON [Concomitant]
     Dosage: 120 MG, UNK
     Route: 048
  5. ASACOL [Concomitant]
     Dosage: 25 MG, UNK
     Route: 048
  6. ATACAND [Concomitant]
     Dosage: 8 MG, UNK
     Route: 048
  7. NU-SEALS ASPIRIN [Concomitant]

REACTIONS (1)
  - NEOPLASM MALIGNANT [None]
